FAERS Safety Report 9372186 (Version 1)
Quarter: 2013Q2

REPORT INFORMATION
  Report Type: Report from Study
  Country: US (occurrence: US)
  Receive Date: 20130627
  Receipt Date: 20130627
  Transmission Date: 20140414
  Serious: Yes (Other)
  Sender: FDA-Public Use
  Company Number: US-MYLANLABS-2012S1016683

PATIENT
  Age: 61 Year
  Sex: Female

DRUGS (7)
  1. CLOZAPINE TABLETS [Suspect]
     Dosage: 200MG PO Q HS
     Route: 048
     Dates: start: 20120726, end: 20120807
  2. BENADRYL [Concomitant]
  3. PREMARIN [Concomitant]
  4. OMEPRAZOLE [Concomitant]
  5. DEPAKOTE [Concomitant]
  6. LORAZEPAM [Concomitant]
  7. CLONAZEPAM [Concomitant]

REACTIONS (1)
  - Granulocytopenia [Not Recovered/Not Resolved]
